FAERS Safety Report 7030117-7 (Version None)
Quarter: 2010Q4

REPORT INFORMATION
  Report Type: 
  Country: None (occurrence: None)
  Receive Date: 20101006
  Receipt Date: 20100929
  Transmission Date: 20110411
  Serious: Yes (Disabling, Other)
  Sender: FDA-Public Use
  Company Number: BR-PFIZER INC-2010123758

PATIENT
  Age: 31 Year
  Sex: Male

DRUGS (1)
  1. CHAMPIX [Suspect]
     Indication: TOBACCO USER
     Dosage: UNK, ONCE DAILY
     Route: 048
     Dates: start: 20100901, end: 20100901

REACTIONS (5)
  - DISTURBANCE IN ATTENTION [None]
  - HYPOREFLEXIA [None]
  - IMPAIRED DRIVING ABILITY [None]
  - INSOMNIA [None]
  - SOMNOLENCE [None]
